FAERS Safety Report 8739358 (Version 2)
Quarter: 2012Q4

REPORT INFORMATION
  Report Type: 
  Country: NZ (occurrence: NZ)
  Receive Date: 20120823
  Receipt Date: 20120910
  Transmission Date: 20130627
  Serious: Yes (Hospitalization, Other)
  Sender: FDA-Public Use
  Company Number: PHHY2012NZ072450

PATIENT
  Age: 52 None
  Sex: Male

DRUGS (2)
  1. CLOZARIL [Suspect]
     Indication: SCHIZOPHRENIA
     Dosage: 250 mg
     Dates: start: 20061109
  2. CLOZARIL [Suspect]
     Dosage: 200 mg

REACTIONS (1)
  - Mental impairment [Not Recovered/Not Resolved]
